FAERS Safety Report 11589280 (Version 1)
Quarter: 2015Q4

REPORT INFORMATION
  Report Type: Spontaneous
  Country: BR (occurrence: BR)
  Receive Date: 20151002
  Receipt Date: 20151002
  Transmission Date: 20160304
  Serious: Yes (Other)
  Sender: FDA-Public Use
  Company Number: BR-BAXTER-2015BAX052689

PATIENT
  Age: 46 Year
  Sex: Female
  Weight: 74 kg

DRUGS (9)
  1. ONDANSETRON [Concomitant]
     Active Substance: ONDANSETRON
     Indication: PREMEDICATION
     Route: 042
     Dates: start: 20141110, end: 20141110
  2. DOCETAXEL. [Suspect]
     Active Substance: DOCETAXEL
     Indication: BREAST CANCER
     Dosage: 1ST CYCLE
     Route: 042
     Dates: start: 20141016
  3. DOCETAXEL. [Suspect]
     Active Substance: DOCETAXEL
     Dosage: 2ND CYCLE
     Route: 042
     Dates: start: 20141110, end: 20141110
  4. DEXAMETHASONE. [Concomitant]
     Active Substance: DEXAMETHASONE
     Indication: PREMEDICATION
     Route: 042
     Dates: start: 20141110, end: 20141110
  5. DOXORUBICIN [Suspect]
     Active Substance: DOXORUBICIN
     Dosage: 2ND CYCLE
     Route: 042
     Dates: start: 20141110, end: 20141205
  6. GENUXAL [Suspect]
     Active Substance: CYCLOPHOSPHAMIDE
     Dosage: 1092 (UNITS NOT REPORTED), 2ND CYCLE
     Route: 042
     Dates: start: 20141110, end: 20141205
  7. DOXORUBICIN [Suspect]
     Active Substance: DOXORUBICIN
     Indication: BREAST CANCER
     Dosage: 1ST CYCLE
     Route: 042
     Dates: start: 20141016
  8. RANITIDINE [Concomitant]
     Active Substance: RANITIDINE\RANITIDINE HYDROCHLORIDE
     Indication: PRODUCT USED FOR UNKNOWN INDICATION
     Dosage: PER NIGHT
     Route: 048
     Dates: start: 20141107, end: 20150205
  9. GENUXAL [Suspect]
     Active Substance: CYCLOPHOSPHAMIDE
     Indication: BREAST CANCER
     Dosage: 1092 (UNITS NOT REPORTED), 1ST CYCLE
     Route: 042
     Dates: start: 20141016

REACTIONS (6)
  - Pyrexia [Recovered/Resolved]
  - Onychalgia [Recovered/Resolved]
  - Erythema [Recovered/Resolved]
  - Pain in extremity [Recovered/Resolved]
  - Pain [Recovered/Resolved]
  - Acute febrile neutrophilic dermatosis [Unknown]

NARRATIVE: CASE EVENT DATE: 20141129
